FAERS Safety Report 19279794 (Version 1)
Quarter: 2021Q2

REPORT INFORMATION
  Report Type: Spontaneous
  Country: US (occurrence: US)
  Receive Date: 20210520
  Receipt Date: 20210520
  Transmission Date: 20210717
  Serious: Yes (Other)
  Sender: FDA-Public Use
  Company Number: US-MYLANLABS-2021M1029315

PATIENT
  Sex: Female

DRUGS (4)
  1. METHOTREXATE. [Suspect]
     Active Substance: METHOTREXATE
     Indication: CHEMOTHERAPY
  2. METHOTREXATE. [Suspect]
     Active Substance: METHOTREXATE
     Indication: MEDULLOBLASTOMA
     Dosage: UNK
     Route: 037
  3. METHOTREXATE. [Suspect]
     Active Substance: METHOTREXATE
     Indication: CHEMOTHERAPY
  4. METHOTREXATE. [Suspect]
     Active Substance: METHOTREXATE
     Indication: MEDULLOBLASTOMA
     Route: 042

REACTIONS (1)
  - Treatment failure [Unknown]
